FAERS Safety Report 9248212 (Version 1)
Quarter: 2013Q2

REPORT INFORMATION
  Report Type: Spontaneous
  Country: FR (occurrence: FR)
  Receive Date: 20130423
  Receipt Date: 20130423
  Transmission Date: 20140414
  Serious: Yes (Hospitalization)
  Sender: FDA-Public Use
  Company Number: FR-SANOFI-AVENTIS-2013SA040457

PATIENT
  Age: 47 Year
  Sex: Female
  Weight: 100 kg

DRUGS (6)
  1. TELFAST [Suspect]
     Indication: ECZEMA
     Route: 048
     Dates: start: 20130212, end: 20130228
  2. ATARAX [Suspect]
     Indication: ECZEMA
     Route: 048
     Dates: start: 20130212, end: 20130228
  3. COPPER SULFATE/ZINC OXIDE [Concomitant]
     Indication: ECZEMA
     Dates: start: 20130212, end: 20130227
  4. DIPROSONE [Concomitant]
     Indication: ECZEMA
     Dates: start: 20130212
  5. AERIUS [Concomitant]
     Indication: ECZEMA
     Dates: start: 20130205
  6. PEVISONE [Concomitant]
     Indication: ECZEMA
     Dates: start: 20130205

REACTIONS (1)
  - Toxic skin eruption [Recovered/Resolved]
